FAERS Safety Report 25281642 (Version 2)
Quarter: 2025Q2

REPORT INFORMATION
  Report Type: Spontaneous
  Country: CH (occurrence: CH)
  Receive Date: 20250508
  Receipt Date: 20250522
  Transmission Date: 20250717
  Serious: Yes (Other)
  Sender: NOVARTIS
  Company Number: CH-002147023-NVSC2025CH073416

PATIENT
  Sex: Male

DRUGS (2)
  1. PLUVICTO [Suspect]
     Active Substance: LUTETIUM LU-177 VIPIVOTIDE TETRAXETAN
     Indication: Hormone-refractory prostate cancer
     Dosage: 7.242 GBQ, QD
     Route: 042
     Dates: start: 20250326, end: 20250326
  2. PLUVICTO [Suspect]
     Active Substance: LUTETIUM LU-177 VIPIVOTIDE TETRAXETAN
     Dosage: 7.093 GBQ, QD
     Route: 042
     Dates: start: 20250428, end: 20250428

REACTIONS (2)
  - Dementia [Not Recovered/Not Resolved]
  - Inappropriate schedule of product administration [Unknown]
